FAERS Safety Report 17272269 (Version 1)
Quarter: 2020Q1

REPORT INFORMATION
  Report Type: Other
  Country: DE (occurrence: DE)
  Receive Date: 20200115
  Receipt Date: 20200115
  Transmission Date: 20200409
  Serious: Yes (Congenital Anomaly, Other)
  Sender: FDA-Public Use
  Company Number: DE-SUNRISE PHARMACEUTICAL, INC.-2079046

PATIENT
  Sex: Male
  Weight: .9 kg

DRUGS (2)
  1. VALPROATE SODIUM. [Suspect]
     Active Substance: VALPROATE SODIUM
     Route: 064
  2. FOLIC ACID. [Suspect]
     Active Substance: FOLIC ACID
     Indication: FOETAL EXPOSURE DURING PREGNANCY
     Route: 064

REACTIONS (9)
  - Low set ears [Not Recovered/Not Resolved]
  - Dysmorphism [Not Recovered/Not Resolved]
  - Prominent epicanthal folds [Unknown]
  - Inguinal hernia [Unknown]
  - Foetal anticonvulsant syndrome [Not Recovered/Not Resolved]
  - Haemangioma [Unknown]
  - Pericardial cyst [Unknown]
  - Hypermobility syndrome [Not Recovered/Not Resolved]
  - Hypospadias [Unknown]
